FAERS Safety Report 11275063 (Version 1)
Quarter: 2015Q3

REPORT INFORMATION
  Report Type: Spontaneous
  Country: US (occurrence: US)
  Receive Date: 20150716
  Receipt Date: 20150716
  Transmission Date: 20151125
  Serious: Yes (Other)
  Sender: FDA-Public Use
  Company Number: US-BEH-2015052289

PATIENT
  Age: 60 Year
  Sex: Male

DRUGS (3)
  1. CARIMUNE [Suspect]
     Active Substance: HUMAN IMMUNOGLOBULIN G
     Dates: start: 20150621
  2. CARIMUNE [Suspect]
     Active Substance: HUMAN IMMUNOGLOBULIN G
     Dates: start: 20150622
  3. CARIMUNE [Suspect]
     Active Substance: HUMAN IMMUNOGLOBULIN G
     Indication: GUILLAIN-BARRE SYNDROME
     Dates: start: 20150620

REACTIONS (1)
  - Hepatitis C antibody positive [Unknown]

NARRATIVE: CASE EVENT DATE: 20150630
